FAERS Safety Report 5252074-6 (Version None)
Quarter: 2007Q1

REPORT INFORMATION
  Report Type: 
  Country: None (occurrence: None)
  Receive Date: 20070227
  Receipt Date: 20070214
  Transmission Date: 20070707
  Serious: Yes (Death, Hospitalization)
  Sender: FDA-Public Use
  Company Number: SU-2007-005916

PATIENT
  Age: 66 Year
  Sex: Male

DRUGS (7)
  1. OLMESARTAN [Suspect]
     Indication: RENAL FAILURE
     Dosage: 20 MG QD PO
     Route: 048
     Dates: start: 20061027
  2. AVANDIA [Concomitant]
  3. DIGOXIN [Concomitant]
  4. ASPIRIN [Concomitant]
  5. SECALIP [Concomitant]
  6. RESINCALCIO [Concomitant]
  7. VITALUX [Concomitant]

REACTIONS (3)
  - CARDIO-RESPIRATORY ARREST [None]
  - HYPERGLYCAEMIA [None]
  - RENAL IMPAIRMENT [None]
